FAERS Safety Report 5849560-4 (Version None)
Quarter: 2008Q3

REPORT INFORMATION
  Report Type: 
  Country: None (occurrence: None)
  Receive Date: 20080819
  Receipt Date: 20080808
  Transmission Date: 20090109
  Serious: Yes (Hospitalization, Other)
  Sender: FDA-Public Use
  Company Number: US-JNJFOC-20080802101

PATIENT
  Sex: Male

DRUGS (3)
  1. REMICADE [Suspect]
     Route: 042
  2. REMICADE [Suspect]
     Indication: VASCULITIS
     Dosage: FOUR INFUSIONS ON UNSPECFIED DATES
     Route: 042
  3. PREDNISONE TAB [Concomitant]
     Indication: VASCULITIS
     Route: 048

REACTIONS (4)
  - CLOSTRIDIAL INFECTION [None]
  - FALL [None]
  - HIP FRACTURE [None]
  - PNEUMONIA [None]
